FAERS Safety Report 7446925-4 (Version None)
Quarter: 2011Q2

REPORT INFORMATION
  Report Type: 
  Country: None (occurrence: None)
  Receive Date: 20110429
  Receipt Date: 20101115
  Transmission Date: 20111010
  Serious: No
  Sender: FDA-Public Use
  Company Number: US-ASTRAZENECA-2010SE54399

PATIENT
  Age: 26291 Day
  Sex: Male

DRUGS (17)
  1. NEXIUM [Suspect]
     Indication: GASTROOESOPHAGEAL REFLUX DISEASE
     Route: 048
     Dates: start: 20101111
  2. FUROSEMIDE [Concomitant]
  3. COREG [Concomitant]
  4. PROBENECID [Concomitant]
  5. TRIPLE OMEGA [Concomitant]
  6. FISH OIL [Concomitant]
  7. ATACAND [Concomitant]
  8. POTASSIUM CHLORIDE [Concomitant]
  9. WARFARIN SODIUM [Concomitant]
  10. HAWTHORN BERRY [Concomitant]
  11. IRON [Concomitant]
  12. MELATONIN [Concomitant]
  13. FLUTICASONE NASAL SPRAY [Concomitant]
  14. PRAVASTATIN [Concomitant]
  15. VITAMIN E [Concomitant]
  16. CINNAMON BARK [Concomitant]
  17. NIASPAN [Concomitant]

REACTIONS (3)
  - PRODUCTIVE COUGH [None]
  - EAR DISCOMFORT [None]
  - INCREASED UPPER AIRWAY SECRETION [None]
